FAERS Safety Report 8537013-4 (Version None)
Quarter: 2012Q3

REPORT INFORMATION
  Report Type: 
  Country: None (occurrence: None)
  Receive Date: 20120713
  Receipt Date: 20120703
  Transmission Date: 20120928
  Serious: Yes (Other)
  Sender: FDA-Public Use
  Company Number: ADR-2012-00839

PATIENT
  Age: 64 Year
  Sex: Male

DRUGS (1)
  1. BACLOFEN [Suspect]
     Indication: CONGENITAL ANOMALY
     Dosage: 50 MCG/DAY

REACTIONS (2)
  - LIPOMA [None]
  - IMPLANT SITE EFFUSION [None]
